FAERS Safety Report 8910867 (Version 1)
Quarter: 2012Q4

REPORT INFORMATION
  Report Type: 
  Country: US (occurrence: US)
  Receive Date: 20121116
  Receipt Date: 20121116
  Transmission Date: 20130627
  Serious: No
  Sender: FDA-Public Use
  Company Number: US-009507513-1211USA004274

PATIENT
  Age: 62 Year
  Sex: Male

DRUGS (4)
  1. PEGINTRON [Suspect]
     Indication: HEPATITIS C
     Dosage: 150 Microgram, qw
     Dates: start: 20121107
  2. CYMBALTA [Concomitant]
     Dosage: UNK
  3. LISINOPRIL [Concomitant]
     Dosage: UNK
  4. SEROQUEL [Concomitant]

REACTIONS (2)
  - Pain [Recovering/Resolving]
  - Myalgia [Recovering/Resolving]
